FAERS Safety Report 8503860-8 (Version None)
Quarter: 2012Q3

REPORT INFORMATION
  Report Type: 
  Country: None (occurrence: None)
  Receive Date: 20120711
  Receipt Date: 20120629
  Transmission Date: 20120928
  Serious: Yes (Hospitalization)
  Sender: FDA-Public Use
  Company Number: DE-BRISTOL-MYERS SQUIBB COMPANY-16752784

PATIENT
  Age: 66 Year
  Sex: Male
  Weight: 70 kg

DRUGS (4)
  1. FLUOROURACIL [Suspect]
     Indication: HEAD AND NECK CANCER
     Dates: start: 20120611
  2. CETUXIMAB [Suspect]
     Indication: HEAD AND NECK CANCER
     Dosage: LATEST INFUSION:25JUN12
     Route: 042
     Dates: start: 20120625
  3. DEXAMETHASONE [Suspect]
     Indication: NAUSEA
     Dosage: 1 DF: 8 UNITS NOS
     Dates: start: 20120625, end: 20120625
  4. CISPLATIN [Suspect]
     Indication: HEAD AND NECK CANCER
     Dosage: LATEST INFUSION:11JUN12
     Dates: start: 20120611

REACTIONS (1)
  - CIRCULATORY COLLAPSE [None]
